FAERS Safety Report 6691271-X (Version None)
Quarter: 2010Q2

REPORT INFORMATION
  Report Type: 
  Country: None (occurrence: None)
  Receive Date: 20100422
  Receipt Date: 20100414
  Transmission Date: 20101027
  Serious: Yes (Death, Hospitalization)
  Sender: FDA-Public Use
  Company Number: GB-JNJFOC-20100404955

PATIENT
  Age: 86 Year
  Sex: Male

DRUGS (21)
  1. ACETAMINOPHEN AND CODEINE PHOSPHATE [Suspect]
     Indication: PAIN
     Route: 048
  2. PARACETAMOL [Suspect]
     Indication: PAIN
     Route: 048
  3. PARACETAMOL [Suspect]
     Dosage: 4 G
     Route: 048
  4. CODEINE SULFATE [Concomitant]
     Route: 048
  5. OMEPRAZOLE [Concomitant]
     Route: 048
  6. BENZYLPENICILLIN [Concomitant]
     Indication: PNEUMONIA
     Route: 042
  7. BISOPROLOL [Concomitant]
     Indication: CARDIAC FAILURE
     Route: 048
  8. BUMETANIDE [Concomitant]
     Indication: CARDIAC FAILURE
     Route: 048
  9. CHLORDIAZEPOXIDE [Concomitant]
     Indication: ALCOHOL WITHDRAWAL SYNDROME
     Route: 048
  10. CYCLIZINE [Concomitant]
     Route: 042
  11. DIGOXIN [Concomitant]
     Indication: ATRIAL FIBRILLATION
     Route: 048
  12. METRONIDAZOLE [Concomitant]
     Route: 042
  13. MOVICOL [Concomitant]
     Indication: CONSTIPATION
     Route: 048
  14. ONDANSETRON [Concomitant]
     Route: 042
  15. PABRINEX [Concomitant]
     Indication: ALCOHOL WITHDRAWAL SYNDROME
     Route: 042
  16. RAMIPRIL [Concomitant]
     Indication: RENAL FAILURE
     Route: 048
  17. RAMIPRIL [Concomitant]
     Indication: CARDIAC FAILURE
     Route: 048
  18. SIMVASTATIN [Concomitant]
     Indication: BLOOD CHOLESTEROL
     Route: 048
  19. SPIRONOLACTONE [Concomitant]
     Indication: HEART RATE
     Route: 048
  20. VITAMIN B COMPLEX TAB [Concomitant]
     Indication: ALCOHOL WITHDRAWAL SYNDROME
     Route: 048
  21. VITAMIN C [Concomitant]
     Indication: ALCOHOL WITHDRAWAL SYNDROME
     Route: 048

REACTIONS (6)
  - ACIDOSIS [None]
  - ALANINE AMINOTRANSFERASE INCREASED [None]
  - ATRIAL FIBRILLATION [None]
  - HEPATIC NECROSIS [None]
  - OVERDOSE [None]
  - VOMITING [None]
